FAERS Safety Report 12203522 (Version 1)
Quarter: 2016Q1

REPORT INFORMATION
  Report Type: Spontaneous
  Country: TW (occurrence: TW)
  Receive Date: 20160323
  Receipt Date: 20160323
  Transmission Date: 20160526
  Serious: Yes (Other)
  Sender: FDA-Public Use
  Company Number: TW-STRIDES ARCOLAB LIMITED-2016SP001910

PATIENT

DRUGS (2)
  1. PREDNISOLONE. [Suspect]
     Active Substance: PREDNISOLONE
     Indication: HEART TRANSPLANT
     Dosage: UNK
  2. TACROLIMUS. [Suspect]
     Active Substance: TACROLIMUS
     Indication: HEART TRANSPLANT
     Dosage: UNK

REACTIONS (7)
  - Hepatitis acute [Recovered/Resolved]
  - Asthenia [Recovered/Resolved]
  - Hepatitis B [Recovered/Resolved]
  - Hepatic encephalopathy [Recovered/Resolved]
  - Chromaturia [Recovered/Resolved]
  - Hepatic failure [Recovered/Resolved]
  - Hepatic enzyme increased [Recovered/Resolved]
